FAERS Safety Report 6793221 (Version 1)
Quarter: 2020Q3

REPORT INFORMATION
  Report Type: Report from Study
  Country: US (occurrence: US)
  Receive Date: 20081022
  Receipt Date: 20081022
  Transmission Date: 20201105
  Serious: Yes (Death)
  Sender: FDA-Public Use
  Company Number: US-ROCHE-592079

PATIENT
  Age: 69 Year
  Sex: Female

DRUGS (1)
  1. IBANDRONIC ACID. [Suspect]
     Active Substance: IBANDRONIC ACID
     Indication: PRODUCT USED FOR UNKNOWN INDICATION
     Route: 065
     Dates: start: 20070227

REACTIONS (1)
  - Death [Fatal]

NARRATIVE: CASE EVENT DATE: 20081014
